FAERS Safety Report 25078231 (Version 1)
Quarter: 2025Q1

REPORT INFORMATION
  Report Type: Spontaneous
  Country: US (occurrence: None)
  Receive Date: 20250313
  Receipt Date: 20250313
  Transmission Date: 20250409
  Serious: Yes (Hospitalization)
  Sender: FDA-CTU
  Company Number: None

PATIENT
  Age: 68 Year
  Sex: Male

DRUGS (4)
  1. DEFERASIROX [Suspect]
     Active Substance: DEFERASIROX
     Indication: Haemochromatosis
     Route: 048
     Dates: start: 20250212
  2. ASPIRIN [Concomitant]
     Active Substance: ASPIRIN
  3. DEFERASIROX [Concomitant]
     Active Substance: DEFERASIROX
  4. VENCLEXTA [Concomitant]
     Active Substance: VENETOCLAX

REACTIONS (1)
  - Chemotherapy [None]

NARRATIVE: CASE EVENT DATE: 20250312
